FAERS Safety Report 6460590-4 (Version None)
Quarter: 2009Q4

REPORT INFORMATION
  Report Type: 
  Country: None (occurrence: None)
  Receive Date: 20091130
  Receipt Date: 20091126
  Transmission Date: 20100525
  Serious: Yes (Life-Threatening, Hospitalization)
  Sender: FDA-Public Use
  Company Number: NL-JNJFOC-20091107765

PATIENT
  Sex: Female
  Weight: 20 kg

DRUGS (4)
  1. CONCERTA [Suspect]
     Indication: ASPERGER'S DISORDER
  2. RITALIN [Suspect]
     Indication: ASPERGER'S DISORDER
     Dosage: 1 10MG AND 1 5MG
  3. BECLOMETASON [Concomitant]
     Route: 065
  4. MELATONIN [Concomitant]

REACTIONS (5)
  - CHEST PAIN [None]
  - CYANOSIS [None]
  - OFF LABEL USE [None]
  - SINUS TACHYCARDIA [None]
  - TONGUE DISCOLOURATION [None]
